FAERS Safety Report 9705630 (Version 1)
Quarter: 2013Q4

REPORT INFORMATION
  Report Type: Spontaneous
  Country: US (occurrence: US)
  Receive Date: 20131122
  Receipt Date: 20131122
  Transmission Date: 20140711
  Serious: No
  Sender: FDA-Public Use
  Company Number: US-GILEAD-2008-0017178

PATIENT
  Sex: Female
  Weight: 131.54 kg

DRUGS (11)
  1. LETAIRIS [Suspect]
     Indication: PULMONARY ARTERIAL HYPERTENSION
     Route: 048
     Dates: start: 20080619
  2. TEKTURNA [Concomitant]
     Route: 048
  3. VERAPAMIL [Concomitant]
     Route: 048
  4. COUMADIN [Concomitant]
     Route: 048
  5. SINGULAIR [Concomitant]
     Route: 048
  6. PREDNISONE [Concomitant]
     Route: 048
  7. NOVOLOG [Concomitant]
     Route: 058
  8. OXYGEN [Concomitant]
  9. MULTIVITAMIN [Concomitant]
     Route: 048
  10. MAG-OX [Concomitant]
     Route: 048
  11. FOLBEE [Concomitant]
     Route: 048

REACTIONS (2)
  - Local swelling [None]
  - Fluid retention [None]
